FAERS Safety Report 20140193 (Version 1)
Quarter: 2021Q4

REPORT INFORMATION
  Report Type: Spontaneous
  Country: US (occurrence: US)
  Receive Date: 20211202
  Receipt Date: 20211202
  Transmission Date: 20220304
  Serious: No
  Sender: FDA-Public Use
  Company Number: US-ELI_LILLY_AND_COMPANY-US202111011329

PATIENT
  Age: 87 Year
  Sex: Female

DRUGS (2)
  1. ETESEVIMAB [Suspect]
     Active Substance: ETESEVIMAB
     Indication: COVID-19 treatment
     Dosage: UNK, SINGLE
     Route: 042
  2. BAMLANIVIMAB [Suspect]
     Active Substance: BAMLANIVIMAB
     Indication: COVID-19 treatment
     Dosage: UNK UNK, SINGLE
     Route: 042

REACTIONS (1)
  - Infusion site extravasation [Unknown]
